FAERS Safety Report 24718404 (Version 1)
Quarter: 2024Q4

REPORT INFORMATION
  Report Type: Spontaneous
  Country: US (occurrence: US)
  Receive Date: 20241210
  Receipt Date: 20241210
  Transmission Date: 20250115
  Serious: No
  Sender: INCYTE
  Company Number: US-EVENT-000550

PATIENT

DRUGS (1)
  1. OPZELURA [Suspect]
     Active Substance: RUXOLITINIB PHOSPHATE
     Indication: Dermatitis atopic
     Dosage: UNK, BID (APPLY TO AFFECTED AREA(S) OF BODY TWICE DAILY FOR ATOPIC DERMATITIS AS DIRECTED)
     Route: 061
     Dates: start: 202403

REACTIONS (1)
  - Ill-defined disorder [Unknown]
